FAERS Safety Report 17439413 (Version 3)
Quarter: 2020Q2

REPORT INFORMATION
  Report Type: Spontaneous
  Country: US (occurrence: US)
  Receive Date: 20200220
  Receipt Date: 20200519
  Transmission Date: 20200713
  Serious: No
  Sender: FDA-Public Use
  Company Number: US-BIOGEN-2020BI00841241

PATIENT
  Sex: Female

DRUGS (3)
  1. GABAPENTIN. [Concomitant]
     Active Substance: GABAPENTIN
     Route: 065
  2. SERTRALINE HCL [Concomitant]
     Active Substance: SERTRALINE HYDROCHLORIDE
     Route: 065
  3. TECFIDERA [Suspect]
     Active Substance: DIMETHYL FUMARATE
     Indication: MULTIPLE SCLEROSIS
     Dosage: TAKE 1 CAPSULE (240 MG) BY MOUTH TWICE A DAY
     Route: 048
     Dates: start: 20200120

REACTIONS (6)
  - Thirst [Unknown]
  - Feeling hot [Unknown]
  - Product dose omission [Unknown]
  - Hyperhidrosis [Unknown]
  - Headache [Unknown]
  - Malaise [Unknown]
